FAERS Safety Report 25807499 (Version 2)
Quarter: 2025Q3

REPORT INFORMATION
  Report Type: Spontaneous
  Country: EU (occurrence: EU)
  Receive Date: 20250916
  Receipt Date: 20250923
  Transmission Date: 20251020
  Serious: Yes (Death, Life-Threatening, Hospitalization)
  Sender: TEVA
  Company Number: EU-TEVA-VS-3371394

PATIENT
  Age: 50 Year
  Sex: Male

DRUGS (8)
  1. ACYCLOVIR [Suspect]
     Active Substance: ACYCLOVIR
     Indication: Disseminated herpes simplex
     Route: 065
  2. MEROPENEM [Concomitant]
     Active Substance: MEROPENEM
     Indication: Evidence based treatment
  3. CASPOFUNGIN [Concomitant]
     Active Substance: CASPOFUNGIN
     Indication: Evidence based treatment
  4. HYDROCORTISONE [Suspect]
     Active Substance: HYDROCORTISONE
     Indication: Septic shock
     Route: 065
  5. VANCOMYCIN [Concomitant]
     Active Substance: VANCOMYCIN
     Indication: Evidence based treatment
  6. UPADACITINIB [Suspect]
     Active Substance: UPADACITINIB
     Indication: Rheumatoid arthritis
     Route: 065
  7. METHYLPREDNISOLONE [Suspect]
     Active Substance: METHYLPREDNISOLONE
     Indication: Acute hepatic failure
     Route: 042
  8. ACETYLCYSTEINE [Concomitant]
     Active Substance: ACETYLCYSTEINE
     Indication: Evidence based treatment

REACTIONS (17)
  - Drug ineffective [Fatal]
  - Hypoperfusion [Unknown]
  - Circulatory collapse [Unknown]
  - Respiratory failure [Unknown]
  - Sepsis [Fatal]
  - Disseminated herpes simplex [Fatal]
  - Acute hepatic failure [Fatal]
  - Coagulopathy [Unknown]
  - Hepatic necrosis [Unknown]
  - Multiple organ dysfunction syndrome [Fatal]
  - Hepatic encephalopathy [Unknown]
  - Shock [Fatal]
  - Shock haemorrhagic [Unknown]
  - Septic shock [Unknown]
  - Renal failure [Unknown]
  - Cardiac failure [Unknown]
  - Lactic acidosis [Unknown]
